FAERS Safety Report 8344086 (Version 4)
Quarter: 2012Q4

REPORT INFORMATION
  Report Type: 
  Country: US (occurrence: US)
  Receive Date: 20120119
  Receipt Date: 20121011
  Transmission Date: 20130627
  Serious: Yes (Hospitalization)
  Sender: FDA-Public Use
  Company Number: US-GLAXOSMITHKLINE-A0961827A

PATIENT
  Age: 57 Year
  Sex: Female
  Weight: 104.5 kg

DRUGS (15)
  1. FLOLAN [Suspect]
     Indication: PULMONARY ARTERIAL HYPERTENSION
     Dosage: 8NGKM Continuous
     Route: 042
     Dates: start: 20111028
  2. ALDACTONE [Concomitant]
  3. BUMETANIDE [Concomitant]
  4. FOLIC ACID [Concomitant]
  5. MACRODANTIN [Concomitant]
  6. NYSTATIN [Concomitant]
  7. HUMALOG [Concomitant]
  8. (TYLENOL EXTRA STRENGTH) ACETAMINOPHEN [Concomitant]
  9. MULTIVITAMIN [Concomitant]
  10. SPIRONOLACTONE [Concomitant]
  11. LANTUS [Concomitant]
  12. LASIX [Concomitant]
  13. OMEGA 3 [Concomitant]
  14. TRAMADOL [Concomitant]
  15. DIGOXIN [Concomitant]

REACTIONS (17)
  - Hypoxia [Recovering/Resolving]
  - Right ventricular failure [Recovering/Resolving]
  - Cardiac failure congestive [Recovering/Resolving]
  - Ascites [Unknown]
  - Sepsis [Unknown]
  - Hypotension [Recovered/Resolved]
  - Urinary tract infection [Recovering/Resolving]
  - Blood creatinine increased [Recovering/Resolving]
  - Hyperkalaemia [Recovering/Resolving]
  - Palpitations [Unknown]
  - Chills [Unknown]
  - Weight increased [Unknown]
  - Prothrombin time prolonged [Unknown]
  - International normalised ratio increased [Unknown]
  - Protein urine present [Unknown]
  - Protein total decreased [Unknown]
  - Blood albumin decreased [Unknown]
